FAERS Safety Report 10461084 (Version 2)
Quarter: 2014Q3

REPORT INFORMATION
  Report Type: Spontaneous
  Country: US (occurrence: US)
  Receive Date: 20140918
  Receipt Date: 20140918
  Transmission Date: 20150326
  Serious: No
  Sender: FDA-Public Use
  Company Number: 2014SP003683

PATIENT
  Sex: Female

DRUGS (11)
  1. LORTAB [Concomitant]
     Active Substance: ACETAMINOPHEN\HYDROCODONE BITARTRATE
  2. DOXYCYCLINE. [Suspect]
     Active Substance: DOXYCYCLINE
  3. ZOLOFT [Suspect]
     Active Substance: SERTRALINE HYDROCHLORIDE
  4. PIROXICAM. [Suspect]
     Active Substance: PIROXICAM
  5. LOPERAMIDE HYDROCHLORIDE. [Suspect]
     Active Substance: LOPERAMIDE HYDROCHLORIDE
  6. FLEXERIL /00821801/ [Suspect]
     Active Substance: CEFIXIME
  7. XANAX [Concomitant]
     Active Substance: ALPRAZOLAM
  8. INDOMETACIN [Suspect]
     Active Substance: INDOMETHACIN
  9. CODEINE [Suspect]
     Active Substance: CODEINE
  10. ENDOCET [Suspect]
     Active Substance: ACETAMINOPHEN\OXYCODONE HYDROCHLORIDE
  11. ZANAFLEX [Concomitant]
     Active Substance: TIZANIDINE HYDROCHLORIDE

REACTIONS (1)
  - Drug hypersensitivity [Unknown]
